FAERS Safety Report 7006083-7 (Version None)
Quarter: 2010Q3

REPORT INFORMATION
  Report Type: 
  Country: None (occurrence: None)
  Receive Date: 20100921
  Receipt Date: 20100909
  Transmission Date: 20110219
  Serious: Yes (Other)
  Sender: FDA-Public Use
  Company Number: BR-PFIZER INC-2010114570

PATIENT
  Sex: Female

DRUGS (2)
  1. XALATAN [Suspect]
     Indication: GLAUCOMA
     Dosage: 3 UG, 1X/DAY
     Route: 047
     Dates: start: 20100201
  2. COSOPT [Suspect]
     Dosage: UNK
     Dates: start: 20100901, end: 20100901

REACTIONS (4)
  - HEAD DISCOMFORT [None]
  - HEADACHE [None]
  - INTRAOCULAR PRESSURE INCREASED [None]
  - LIVER DISORDER [None]
